FAERS Safety Report 18012684 (Version 1)
Quarter: 2020Q3

REPORT INFORMATION
  Report Type: Other
  Country: MA (occurrence: MA)
  Receive Date: 20200713
  Receipt Date: 20200713
  Transmission Date: 20201103
  Serious: Yes (Death)
  Sender: FDA-Public Use
  Company Number: MA-DEXPHARM-20200576

PATIENT
  Age: 59 Year
  Sex: Female

DRUGS (4)
  1. ASPIRIN. [Concomitant]
     Active Substance: ASPIRIN
     Indication: ARTERIOSPASM CORONARY
  2. ISOSORBIDE MONONITRATE. [Suspect]
     Active Substance: ISOSORBIDE MONONITRATE
     Indication: ARTERIOSPASM CORONARY
  3. TRINITRATE SPRAY [Suspect]
     Active Substance: NITROGLYCERIN
     Indication: ARTERIOSPASM CORONARY
     Route: 055
  4. DILTIAZEM. [Suspect]
     Active Substance: DILTIAZEM
     Indication: ARTERIOSPASM CORONARY

REACTIONS (3)
  - Drug ineffective [Not Recovered/Not Resolved]
  - Cardiac arrest [Fatal]
  - Drug interaction [Not Recovered/Not Resolved]
